FAERS Safety Report 5422270-3 (Version None)
Quarter: 2007Q3

REPORT INFORMATION
  Report Type: 
  Country: None (occurrence: None)
  Receive Date: 20070822
  Receipt Date: 20070808
  Transmission Date: 20080115
  Serious: Yes (Hospitalization)
  Sender: FDA-Public Use
  Company Number: DE-GENENTECH-245653

PATIENT
  Sex: Female

DRUGS (2)
  1. HERCEPTIN [Suspect]
     Indication: BREAST CANCER
     Dosage: 2 MG/KG, 1/WEEK
     Route: 042
     Dates: start: 20070215
  2. TAXANE NOS [Suspect]
     Indication: BREAST CANCER

REACTIONS (4)
  - AUTOIMMUNE DISORDER [None]
  - JAUNDICE [None]
  - PYREXIA [None]
  - RENAL FAILURE [None]
